FAERS Safety Report 8798030 (Version 5)
Quarter: 2014Q2

REPORT INFORMATION
  Report Type: Spontaneous
  Country: DE (occurrence: DE)
  Receive Date: 20120920
  Receipt Date: 20140423
  Transmission Date: 20141212
  Serious: Yes (Hospitalization, Other)
  Sender: FDA-Public Use
  Company Number: DE-AMGEN-DEUSP2012058574

PATIENT
  Age: 60 Year
  Sex: Female
  Weight: 95 kg

DRUGS (3)
  1. ENBREL [Suspect]
     Indication: PSORIATIC ARTHROPATHY
     Dosage: 50 MG, WEEKLY
     Route: 065
     Dates: start: 20081110, end: 2012
  2. BUSCOPAN [Concomitant]
     Indication: ABDOMINAL PAIN
     Dosage: 60 MG, AS NECESSARY
     Dates: start: 20120604, end: 20120606
  3. IBUPROFEN [Concomitant]
     Indication: PAIN
     Dosage: 1800 MG, AS NECESSARY
     Dates: start: 20120604, end: 20120606

REACTIONS (6)
  - Renal colic [Recovered/Resolved]
  - Calculus urinary [Recovered/Resolved]
  - Renal colic [Unknown]
  - Liver disorder [Not Recovered/Not Resolved]
  - Musculoskeletal disorder [Unknown]
  - Tuberculosis [Unknown]
